FAERS Safety Report 5512705-X (Version None)
Quarter: 2007Q4

REPORT INFORMATION
  Report Type: 
  Country: None (occurrence: None)
  Receive Date: 20071112
  Receipt Date: 20071106
  Transmission Date: 20080405
  Serious: Yes (Death)
  Sender: FDA-Public Use
  Company Number: GB-ASTRAZENECA-2007GB02250

PATIENT
  Age: 2 Week
  Sex: Female
  Weight: 2.8 kg

DRUGS (4)
  1. QUETIAPINE FUMARATE [Suspect]
     Indication: SCHIZOPHRENIA
     Route: 063
     Dates: start: 20070911, end: 20070923
  2. VENLAFAXINE HCL [Suspect]
     Indication: SCHIZOPHRENIA
     Route: 063
     Dates: start: 20070911, end: 20070923
  3. ZOPICLONE [Suspect]
     Indication: SLEEP DISORDER
     Route: 063
     Dates: start: 20070911, end: 20070923
  4. CANNABIS [Concomitant]
     Dates: start: 20070922

REACTIONS (2)
  - DRUG EXPOSURE VIA BREAST MILK [None]
  - SUDDEN INFANT DEATH SYNDROME [None]
